FAERS Safety Report 18414149 (Version 2)
Quarter: 2020Q4

REPORT INFORMATION
  Report Type: Report from Study
  Country: US (occurrence: US)
  Receive Date: 20201022
  Receipt Date: 20201106
  Transmission Date: 20210114
  Serious: Yes (Hospitalization)
  Sender: FDA-Public Use
  Company Number: US-BAUSCH-BL-2020-030384

PATIENT
  Age: 55 Year
  Sex: Male

DRUGS (2)
  1. SILIQ [Suspect]
     Active Substance: BRODALUMAB
     Indication: PSORIATIC ARTHROPATHY
     Dosage: 210 MG/ 1.5 ML PREFILLED SYRINGE: INJECT 210 MG UNDER THE SKIN; EVERY 2 WEEKS
     Route: 065
     Dates: start: 2020
  2. SILIQ [Suspect]
     Active Substance: BRODALUMAB
     Indication: PSORIASIS
     Dosage: 210 MG/ 1.5 ML PREFILLED SYRINGE: INJECT 210 MG UNDER THE SKIN; AT WEEK 2
     Route: 058
     Dates: start: 20200730, end: 2020

REACTIONS (2)
  - Hospitalisation [Unknown]
  - Product availability issue [Unknown]

NARRATIVE: CASE EVENT DATE: 2020
